FAERS Safety Report 8835113 (Version 3)
Quarter: 2017Q3

REPORT INFORMATION
  Report Type: Spontaneous
  Country: JP (occurrence: JP)
  Receive Date: 20121011
  Receipt Date: 20170830
  Transmission Date: 20171128
  Serious: Yes (Death, Other)
  Sender: FDA-Public Use
  Company Number: JP-BRISTOL-MYERS SQUIBB COMPANY-17018169

PATIENT
  Age: 29 Year
  Sex: Female
  Weight: 53.6 kg

DRUGS (5)
  1. ADRIAMYCIN [Suspect]
     Active Substance: DOXORUBICIN HYDROCHLORIDE
     Indication: BONE SARCOMA
     Dosage: 46 MG/BODY   23AUG12: 46MG
     Route: 041
     Dates: start: 20120717, end: 20120825
  2. BRIPLATIN [Suspect]
     Active Substance: CISPLATIN
     Indication: BONE SARCOMA
     Dosage: 187 MG/BODY   195MM  23AUG12: 187MG
     Route: 041
     Dates: start: 20120717
  3. GRAN [Suspect]
     Active Substance: FILGRASTIM
     Indication: BONE SARCOMA
     Dosage: 225 MG/BODY   FORMULATION:INJ  SYRINGE
     Route: 042
     Dates: start: 20120831, end: 20120901
  4. GRAN [Suspect]
     Active Substance: FILGRASTIM
     Indication: FEBRILE NEUTROPENIA
     Route: 065
  5. METHOTREXATE. [Suspect]
     Active Substance: METHOTREXATE
     Indication: PRODUCT USED FOR UNKNOWN INDICATION
     Dosage: RECEIVED HIGH DOSE OF METHOTREXATE   10G/M2  ON 14AUG12: 15.9G
     Route: 065
     Dates: start: 20120807

REACTIONS (3)
  - Sepsis [Fatal]
  - Pulmonary embolism [Fatal]
  - Shock [Fatal]

NARRATIVE: CASE EVENT DATE: 20120722
